FAERS Safety Report 9613403 (Version 1)
Quarter: 2013Q4

REPORT INFORMATION
  Report Type: Spontaneous
  Country: AU (occurrence: AU)
  Receive Date: 20131010
  Receipt Date: 20131010
  Transmission Date: 20140711
  Serious: Yes (Other)
  Sender: FDA-Public Use
  Company Number: AU-ABBVIE-13P-008-1156231-00

PATIENT
  Age: 63 Year
  Sex: Female

DRUGS (1)
  1. SODIUM VALPROATE [Suspect]
     Indication: PRODUCT USED FOR UNKNOWN INDICATION

REACTIONS (4)
  - Status epilepticus [Unknown]
  - Delirium [Unknown]
  - Ammonia increased [Unknown]
  - Confusional state [Unknown]
